FAERS Safety Report 5062011-5 (Version None)
Quarter: 2006Q3

REPORT INFORMATION
  Report Type: 
  Country: None (occurrence: None)
  Receive Date: 20060719
  Receipt Date: 20060719
  Transmission Date: 20061208
  Serious: No
  Sender: FDA-Public Use
  Company Number: None

PATIENT
  Sex: Female
  Weight: 99.7913 kg

DRUGS (5)
  1. CITALOPRAM [Suspect]
     Dosage: 40 MG 2 AT BEDTIME ORAL
     Route: 048
     Dates: start: 20050101
  2. BENADRYL [Concomitant]
  3. DEPAKOTE [Concomitant]
  4. LOXAPINE [Concomitant]
  5. MIRALAX [Concomitant]

REACTIONS (4)
  - DEPRESSION [None]
  - OBSESSIVE-COMPULSIVE DISORDER [None]
  - THERAPEUTIC PRODUCT INEFFECTIVE [None]
  - THERAPEUTIC RESPONSE UNEXPECTED WITH DRUG SUBSTITUTION [None]
